FAERS Safety Report 19078456 (Version 1)
Quarter: 2021Q1

REPORT INFORMATION
  Report Type: Spontaneous
  Country: US (occurrence: US)
  Receive Date: 20210331
  Receipt Date: 20210331
  Transmission Date: 20210420
  Serious: No
  Sender: FDA-Public Use
  Company Number: US-009507513-2103USA006093

PATIENT
  Age: 48 Month
  Sex: Female

DRUGS (6)
  1. CYCLOPHOSPHAMIDE. [Concomitant]
     Active Substance: CYCLOPHOSPHAMIDE
     Indication: MALIGNANT MELANOMA
  2. SORAFENIB [Concomitant]
     Active Substance: SORAFENIB
     Indication: METASTASES TO MENINGES
  3. SORAFENIB [Concomitant]
     Active Substance: SORAFENIB
     Indication: MALIGNANT MELANOMA
  4. TEMODAR [Suspect]
     Active Substance: TEMOZOLOMIDE
     Indication: MALIGNANT MELANOMA
     Dosage: UNK
     Route: 048
  5. TEMODAR [Suspect]
     Active Substance: TEMOZOLOMIDE
     Indication: METASTASES TO MENINGES
  6. CYCLOPHOSPHAMIDE. [Concomitant]
     Active Substance: CYCLOPHOSPHAMIDE
     Indication: METASTASES TO MENINGES

REACTIONS (1)
  - Off label use [Unknown]
